FAERS Safety Report 15056399 (Version 1)
Quarter: 2018Q2

REPORT INFORMATION
  Report Type: Spontaneous
  Country: US (occurrence: US)
  Receive Date: 20180604
  Receipt Date: 20180604
  Transmission Date: 20180711
  Serious: Yes (Other)
  Sender: FDA-Public Use
  Company Number: None

PATIENT
  Age: 60 Year
  Sex: Female

DRUGS (1)
  1. CREST 3D WHITE WHITESTRIPS DENTAL WHITENING KIT, VERSION UNKNOWN (HYDROGEN PEROXIDE 5.3-14%) STRIP, 1 STRIP [Suspect]
     Active Substance: HYDROGEN PEROXIDE
     Dosage: ONE WHITE STRIP ON TOP TEETH INTRAORAL
     Dates: start: 2001, end: 2015

REACTIONS (3)
  - Loose tooth [None]
  - Tooth loss [None]
  - Gingival recession [None]

NARRATIVE: CASE EVENT DATE: 2014
